FAERS Safety Report 9374385 (Version 1)
Quarter: 2013Q2

REPORT INFORMATION
  Report Type: Spontaneous
  Country: US (occurrence: US)
  Receive Date: 20130628
  Receipt Date: 20130628
  Transmission Date: 20140414
  Serious: Yes (Hospitalization, Other)
  Sender: FDA-Public Use
  Company Number: US-AMGEN-USASP2013044412

PATIENT
  Age: 77 Year
  Sex: Female

DRUGS (29)
  1. PROLIA [Suspect]
     Indication: OSTEOPOROSIS POSTMENOPAUSAL
     Dosage: UNK UNK, Q6MO
     Dates: start: 201201
  2. BROVANA [Concomitant]
  3. BENEFIBER                          /00677201/ [Concomitant]
  4. BUDESONIDE [Concomitant]
  5. VITAMIN D                          /00107901/ [Concomitant]
  6. DALIRESP [Concomitant]
  7. LEXAPRO [Concomitant]
  8. FLORASTOR [Concomitant]
  9. LASIX                              /00032601/ [Concomitant]
  10. NEURONTIN [Concomitant]
  11. IMDUR [Concomitant]
  12. LEVOTHYROXINE [Concomitant]
  13. LORAZEPAM [Concomitant]
  14. MAGNESIUM OXIDE [Concomitant]
  15. MULTIVITAMIN                       /02160401/ [Concomitant]
  16. MUCINEX D [Concomitant]
  17. DETROL [Concomitant]
  18. PANTOPRAZOLE [Concomitant]
  19. POTASSIUM CHLORIDE [Concomitant]
  20. PREDNISONE [Concomitant]
  21. PRAVASTATIN [Concomitant]
  22. LYRICA [Concomitant]
  23. SOTALOL [Concomitant]
  24. SPIRIVA [Concomitant]
  25. COUMADIN                           /00014802/ [Concomitant]
  26. CATAPRESS [Concomitant]
  27. FLONASE [Concomitant]
  28. VITAMIN B PLUS C [Concomitant]
  29. CALCIUM [Concomitant]

REACTIONS (6)
  - Sepsis [Unknown]
  - Atypical mycobacterial infection [Unknown]
  - Stent placement [Unknown]
  - Carotid artery stent insertion [Unknown]
  - Cardiac pacemaker insertion [Unknown]
  - Pneumonia [Unknown]
